FAERS Safety Report 5032789-5 (Version None)
Quarter: 2006Q2

REPORT INFORMATION
  Report Type: 
  Country: None (occurrence: None)
  Receive Date: 20060620
  Receipt Date: 20060620
  Transmission Date: 20061013
  Serious: Yes (Life-Threatening, Hospitalization)
  Sender: FDA-Public Use
  Company Number: None

PATIENT
  Age: 58 Year
  Sex: Male
  Weight: 91 kg

DRUGS (10)
  1. SILDENAFIL CITRATE [Suspect]
     Indication: ERECTILE DYSFUNCTION
     Dosage: ONCE PO
     Route: 048
     Dates: start: 20050705, end: 20050705
  2. ASPIRIN [Concomitant]
  3. WARFARIN SODIUM [Concomitant]
  4. DIGOXIN [Concomitant]
  5. ENALAPRIL [Concomitant]
  6. INSULIN GLARGINE [Concomitant]
  7. NITROGLYCERIN [Suspect]
  8. SIMVASTATIN [Concomitant]
  9. CARVEDILOL [Concomitant]
  10. AMIODARONE HCL [Concomitant]

REACTIONS (4)
  - CARDIAC ARREST [None]
  - LOSS OF CONSCIOUSNESS [None]
  - MEDICAL DEVICE COMPLICATION [None]
  - VENTRICULAR TACHYCARDIA [None]
